FAERS Safety Report 17296678 (Version 1)
Quarter: 2020Q1

REPORT INFORMATION
  Report Type: Spontaneous
  Country: HU (occurrence: HU)
  Receive Date: 20200121
  Receipt Date: 20200121
  Transmission Date: 20200409
  Serious: Yes (Other)
  Sender: FDA-Public Use
  Company Number: NVSC2020HU005471

PATIENT
  Sex: Female

DRUGS (1)
  1. NITRODERM [Suspect]
     Active Substance: NITROGLYCERIN
     Indication: PRODUCT USED FOR UNKNOWN INDICATION
     Dosage: 5 PATCH 30X
     Route: 065

REACTIONS (12)
  - Scratch [Unknown]
  - Communication disorder [Unknown]
  - Parathyroid disorder [Unknown]
  - Myocardial ischaemia [Unknown]
  - Application site erythema [Unknown]
  - Application site dermatitis [Unknown]
  - Application site burn [Unknown]
  - Fall [Unknown]
  - Mobility decreased [Unknown]
  - Somnolence [Unknown]
  - Head injury [Unknown]
  - Hypoacusis [Unknown]
